FAERS Safety Report 15750749 (Version 1)
Quarter: 2018Q4

REPORT INFORMATION
  Report Type: Spontaneous
  Country: US (occurrence: US)
  Receive Date: 20181206
  Receipt Date: 20181206
  Transmission Date: 20190205
  Serious: Yes (Death)
  Sender: FDA-Public Use
  Company Number: None

PATIENT
  Age: 53 Year
  Sex: Male

DRUGS (18)
  1. ACYCLOVIR. [Concomitant]
     Active Substance: ACYCLOVIR
  2. ASPIRIN. [Concomitant]
     Active Substance: ASPIRIN
  3. PANTOPRAZOLE [Concomitant]
     Active Substance: PANTOPRAZOLE
  4. HYDROMORPHONE [Concomitant]
     Active Substance: HYDROMORPHONE
  5. OXYCODONE [Concomitant]
     Active Substance: OXYCODONE
  6. VALSARTAN AND HYDROCHLOROTHIAZIDE [Concomitant]
     Active Substance: HYDROCHLOROTHIAZIDE\VALSARTAN
  7. VENLAFAXINE [Concomitant]
     Active Substance: VENLAFAXINE HYDROCHLORIDE
  8. METOCLOPRAMLDE [Concomitant]
  9. ZYTIGA [Suspect]
     Active Substance: ABIRATERONE ACETATE
     Indication: PROSTATE CANCER
     Route: 048
     Dates: start: 20180424, end: 20181003
  10. FENTANYL. [Concomitant]
     Active Substance: FENTANYL
  11. ODANSETRON [Concomitant]
     Active Substance: ONDANSETRON
  12. TAMSULOSIN [Concomitant]
     Active Substance: TAMSULOSIN
  13. TRAMADOL. [Concomitant]
     Active Substance: TRAMADOL
  14. DEXAMETASONE [Concomitant]
     Active Substance: DEXAMETHASONE
  15. MELOXICAM. [Concomitant]
     Active Substance: MELOXICAM
  16. DRONABINOL. [Concomitant]
     Active Substance: DRONABINOL
  17. ATORVASTATIN [Concomitant]
     Active Substance: ATORVASTATIN
  18. SENNA [Concomitant]
     Active Substance: SENNA LEAF\SENNOSIDES\SENNOSIDES A AND B

REACTIONS (1)
  - Death [None]

NARRATIVE: CASE EVENT DATE: 20181117
